FAERS Safety Report 26005967 (Version 1)
Quarter: 2025Q4

REPORT INFORMATION
  Report Type: Spontaneous
  Country: US (occurrence: None)
  Receive Date: 20251105
  Receipt Date: 20251105
  Transmission Date: 20260118
  Serious: Yes (Other)
  Sender: FDA-CTU
  Company Number: None

PATIENT
  Age: 58 Year
  Sex: Female

DRUGS (1)
  1. LENALIDOMIDE [Suspect]
     Active Substance: LENALIDOMIDE
     Indication: Plasma cell myeloma
     Dosage: 20MG QD ORAL
     Route: 048
     Dates: start: 20250827, end: 20250910

REACTIONS (4)
  - Drug intolerance [None]
  - Ocular discomfort [None]
  - Dizziness [None]
  - Therapy change [None]

NARRATIVE: CASE EVENT DATE: 20250910
